FAERS Safety Report 12575878 (Version 1)
Quarter: 2016Q3

REPORT INFORMATION
  Report Type: Spontaneous
  Country: US (occurrence: US)
  Receive Date: 20160720
  Receipt Date: 20160720
  Transmission Date: 20161109
  Serious: No
  Sender: FDA-Public Use
  Company Number: US-BRISTOL-MYERS SQUIBB COMPANY-BMS-2016-058386

PATIENT
  Sex: Female

DRUGS (4)
  1. YERVOY [Suspect]
     Active Substance: IPILIMUMAB
     Dosage: 10 MG/KG, Q3WK
     Route: 042
  2. YERVOY [Suspect]
     Active Substance: IPILIMUMAB
     Dosage: 10 MG/KG, Q3WK
     Route: 042
  3. YERVOY [Suspect]
     Active Substance: IPILIMUMAB
     Indication: MALIGNANT MELANOMA
     Dosage: 10 MG/KG, Q3WK
     Route: 042
  4. YERVOY [Suspect]
     Active Substance: IPILIMUMAB
     Dosage: 10 MG/KG, Q3WK
     Route: 042

REACTIONS (1)
  - Hypophysitis [Recovering/Resolving]
